FAERS Safety Report 25379535 (Version 3)
Quarter: 2025Q3

REPORT INFORMATION
  Report Type: Spontaneous
  Country: CO (occurrence: CO)
  Receive Date: 20250530
  Receipt Date: 20250729
  Transmission Date: 20251021
  Serious: No
  Sender: PFIZER
  Company Number: CO-PFIZER INC-PV202500063797

PATIENT
  Sex: Male

DRUGS (1)
  1. GENOTROPIN [Suspect]
     Active Substance: SOMATROPIN
     Dosage: 1.8 MG, DAILY (ONCE DAILY)

REACTIONS (4)
  - Drug dose omission by device [Unknown]
  - Expired device used [Unknown]
  - Device information output issue [Unknown]
  - Device mechanical issue [Unknown]
